FAERS Safety Report 5763888-8 (Version None)
Quarter: 2008Q2

REPORT INFORMATION
  Report Type: 
  Country: None (occurrence: None)
  Receive Date: 20080602
  Receipt Date: 20080124
  Transmission Date: 20081010
  Serious: Yes (Hospitalization)
  Sender: FDA-Public Use
  Company Number: PHEH2007US15935

PATIENT
  Age: 67 Year
  Sex: Female
  Weight: 56.7 kg

DRUGS (13)
  1. TEKTURNA [Suspect]
     Indication: HYPERTENSION
     Dosage: 150 MG, QD, ORAL
     Route: 047
     Dates: start: 20071101, end: 20071212
  2. NOVOCAIN [Suspect]
  3. WELCHOL [Concomitant]
  4. GLUCOPHAGE [Concomitant]
  5. IMDUR [Concomitant]
  6. ASPIRIN [Concomitant]
  7. FENOFIBRATE [Concomitant]
  8. AMARYL [Concomitant]
  9. NORVASC [Concomitant]
  10. TOPROL-XL [Concomitant]
  11. BEROCCA PLUS (PYRIDOXINE, RETINOL, RIBOFLAVIN, THIAMINE, TOCOPHEROL) [Concomitant]
  12. PRILOSEC [Concomitant]
  13. LANTUS [Concomitant]

REACTIONS (6)
  - ANGIOEDEMA [None]
  - DYSARTHRIA [None]
  - DYSPHAGIA [None]
  - ODYNOPHAGIA [None]
  - PHARYNGEAL OEDEMA [None]
  - TONGUE OEDEMA [None]
